FAERS Safety Report 9500354 (Version 1)
Quarter: 2013Q3

REPORT INFORMATION
  Report Type: Spontaneous
  Country: US (occurrence: None)
  Receive Date: 20130903
  Receipt Date: 20130903
  Transmission Date: 20140515
  Serious: Yes (Other)
  Sender: FDA-Public Use
  Company Number: AUR-APL-2013-07246

PATIENT
  Sex: Female

DRUGS (2)
  1. CARVEDILOL (CARVEDILOL) [Suspect]
  2. AMIODARONE HCL [Suspect]

REACTIONS (2)
  - Fungal skin infection [None]
  - Electrocardiogram QT prolonged [None]
